FAERS Safety Report 7316957-5 (Version None)
Quarter: 2011Q1

REPORT INFORMATION
  Report Type: 
  Country: None (occurrence: None)
  Receive Date: 20110226
  Receipt Date: 20100907
  Transmission Date: 20110831
  Serious: No
  Sender: FDA-Public Use
  Company Number: US-ALLERGAN-1011526US

PATIENT
  Age: 27 Year
  Sex: Female

DRUGS (1)
  1. BOTOXA? [Suspect]
     Indication: HYPERHIDROSIS
     Dosage: UNK
     Route: 030
     Dates: start: 20100801, end: 20100801

REACTIONS (2)
  - NECK PAIN [None]
  - NASAL CONGESTION [None]
